FAERS Safety Report 4752618-4 (Version None)
Quarter: 2005Q3

REPORT INFORMATION
  Report Type: 
  Country: None (occurrence: None)
  Receive Date: 20050824
  Receipt Date: 20050808
  Transmission Date: 20060218
  Serious: Yes (Other)
  Sender: FDA-Public Use
  Company Number: 2005-BP-13518RO

PATIENT
  Age: 40 Year
  Sex: Male

DRUGS (4)
  1. METHADONE HCL [Suspect]
     Indication: PAIN
     Dosage: 560 MG (, 1 IN 6 HR), PO
     Route: 048
  2. HYDROMORPHONE HCL [Suspect]
     Dosage: 170 MG FOLLOWED BY PCA PUMP), IV
     Route: 042
  3. IBUPROFEN [Suspect]
     Indication: PAIN
  4. KETOROLAC [Suspect]
     Indication: PAIN

REACTIONS (11)
  - AORTIC VALVE INCOMPETENCE [None]
  - BLOOD PRESSURE INCREASED [None]
  - BRADYCARDIA [None]
  - EXTRASYSTOLES [None]
  - HYPOCALCAEMIA [None]
  - HYPOKALAEMIA [None]
  - MITRAL VALVE INCOMPETENCE [None]
  - PULMONARY HYPERTENSION [None]
  - PULMONARY VALVE INCOMPETENCE [None]
  - TORSADE DE POINTES [None]
  - TRICUSPID VALVE INCOMPETENCE [None]
